FAERS Safety Report 20759277 (Version 1)
Quarter: 2022Q2

REPORT INFORMATION
  Report Type: Spontaneous
  Country: US (occurrence: US)
  Receive Date: 20220427
  Receipt Date: 20220427
  Transmission Date: 20220721
  Serious: No
  Sender: FDA-Public Use
  Company Number: US-BioHaven Pharmaceuticals-2022BHV000126

PATIENT
  Age: 74 Year
  Sex: Female
  Weight: 50.848 kg

DRUGS (3)
  1. NURTEC ODT [Suspect]
     Active Substance: RIMEGEPANT SULFATE
     Indication: Migraine
     Dosage: PATIENT ONLY HAD ONE DOSE AND WILL TAKE AS NEEDED, ONCE THE MIGRAINE GOES AWAY SHE WILL NOT TAKE
     Route: 060
     Dates: start: 20220112
  2. PROZAC [Concomitant]
     Active Substance: FLUOXETINE HYDROCHLORIDE
     Indication: Hot flush
     Route: 065
  3. TORADOL [Concomitant]
     Active Substance: KETOROLAC TROMETHAMINE
     Indication: Migraine
     Route: 065
     Dates: start: 20220112

REACTIONS (2)
  - Therapeutic product effect incomplete [Not Recovered/Not Resolved]
  - Product label issue [Not Recovered/Not Resolved]

NARRATIVE: CASE EVENT DATE: 20220112
